FAERS Safety Report 9706908 (Version 1)
Quarter: 2013Q4

REPORT INFORMATION
  Report Type: Spontaneous
  Country: CA (occurrence: CA)
  Receive Date: 20131125
  Receipt Date: 20131125
  Transmission Date: 20140711
  Serious: Yes (Other)
  Sender: FDA-Public Use
  Company Number: CA-ROCHE-1304596

PATIENT
  Sex: Male
  Weight: 79.8 kg

DRUGS (3)
  1. XELODA [Suspect]
     Indication: COLORECTAL CANCER
     Route: 048
     Dates: start: 201306, end: 201307
  2. LIPITOR [Concomitant]
  3. RAMIPRIL [Concomitant]

REACTIONS (1)
  - Neoplasm [Unknown]
